FAERS Safety Report 8634005 (Version 2)
Quarter: 2013Q3

REPORT INFORMATION
  Report Type: Spontaneous
  Country: US (occurrence: US)
  Receive Date: 20120626
  Receipt Date: 20130911
  Transmission Date: 20140515
  Serious: Yes (Disabling)
  Sender: FDA-Public Use
  Company Number: US-ASTRAZENECA-2012SE35856

PATIENT
  Age: 46 Year
  Sex: Female

DRUGS (26)
  1. NEXIUM [Suspect]
     Route: 048
     Dates: start: 20080924, end: 20101120
  2. NEXIUM [Suspect]
     Route: 048
     Dates: start: 20081016
  3. PROTONIX [Concomitant]
  4. TAGAMET [Concomitant]
  5. PEPCID [Concomitant]
  6. PREVACID [Concomitant]
  7. ALKA-SELTZER [Concomitant]
  8. MILK OF MAGNESIA [Concomitant]
  9. GAVISCON [Concomitant]
  10. PEPTO-BISMOL [Concomitant]
  11. ROLAIDS [Concomitant]
  12. MYLANTA [Concomitant]
  13. SOMA [Concomitant]
  14. TRAZADONE [Concomitant]
  15. ADOVAN [Concomitant]
  16. CLONAZEPAM [Concomitant]
  17. CELEXA [Concomitant]
  18. ABILIFY [Concomitant]
  19. IRON [Concomitant]
  20. LYRICA [Concomitant]
  21. LASIX [Concomitant]
  22. AVINZA [Concomitant]
  23. STADOL [Concomitant]
  24. GAS PILL [Concomitant]
  25. CARAFATE [Concomitant]
  26. AMOXICILLIN [Concomitant]

REACTIONS (15)
  - Chronic obstructive pulmonary disease [Unknown]
  - Gout [Unknown]
  - Irritable bowel syndrome [Unknown]
  - Emphysema [Unknown]
  - Nephrolithiasis [Unknown]
  - Osteoporosis [Unknown]
  - Ankle fracture [Unknown]
  - Rib fracture [Unknown]
  - Fall [Unknown]
  - Fractured sacrum [Unknown]
  - Angina pectoris [Unknown]
  - Arthritis [Unknown]
  - Vitamin D deficiency [Unknown]
  - Asthma [Unknown]
  - Bronchitis [Unknown]
